FAERS Safety Report 5401982-1 (Version None)
Quarter: 2007Q3

REPORT INFORMATION
  Report Type: 
  Country: None (occurrence: None)
  Receive Date: 20070727
  Receipt Date: 20070717
  Transmission Date: 20080115
  Serious: Yes (Life-Threatening)
  Sender: FDA-Public Use
  Company Number: 2007AL002908

PATIENT
  Age: 55 Year
  Sex: Male

DRUGS (13)
  1. TRAMADOL HCL [Suspect]
     Indication: PAIN
     Dosage: 100 MG; QID; PO
     Route: 048
     Dates: start: 20070405
  2. WARFARIN SODIUM [Concomitant]
  3. THIAMINE [Concomitant]
  4. GABAPENTIN [Concomitant]
  5. CODEINE PHOSPHATE AND ACETAMINOPHEN [Concomitant]
  6. SPIRONOLACTONE [Concomitant]
  7. OMEPRAZOLE [Concomitant]
  8. BACLOFEN [Concomitant]
  9. DIGOXIN [Concomitant]
  10. TRAZODONE HCL [Concomitant]
  11. METOPROLOL SUCCINATE [Concomitant]
  12. FUROSEMIDE [Concomitant]
  13. FLUOXETINE [Concomitant]

REACTIONS (1)
  - INTERNATIONAL NORMALISED RATIO INCREASED [None]
